FAERS Safety Report 25049241 (Version 2)
Quarter: 2025Q3

REPORT INFORMATION
  Report Type: Spontaneous
  Country: JP (occurrence: JP)
  Receive Date: 20250307
  Receipt Date: 20250810
  Transmission Date: 20251021
  Serious: Yes (Other)
  Sender: ALEXION PHARMACEUTICALS
  Company Number: JP-ASTRAZENECA-250019925_013120_P_1

PATIENT
  Age: 70 Year
  Sex: Male

DRUGS (13)
  1. DURVALUMAB [Suspect]
     Active Substance: DURVALUMAB
     Indication: Non-small cell lung cancer
     Dosage: 1500 MILLIGRAM, Q3W
     Dates: start: 20240517
  2. DURVALUMAB [Suspect]
     Active Substance: DURVALUMAB
     Dosage: 1500 MILLIGRAM, Q3W
     Dates: start: 20230517
  3. TREMELIMUMAB [Suspect]
     Active Substance: TREMELIMUMAB
     Indication: Non-small cell lung cancer
     Dosage: 75 MILLIGRAM, Q3W
     Dates: start: 20240517
  4. TREMELIMUMAB [Suspect]
     Active Substance: TREMELIMUMAB
     Dosage: 75 MILLIGRAM, Q3W
     Dates: start: 20230517
  5. CARBOPLATIN [Concomitant]
     Active Substance: CARBOPLATIN
     Indication: Non-small cell lung cancer
     Route: 065
  6. CARBOPLATIN [Concomitant]
     Active Substance: CARBOPLATIN
     Route: 065
  7. PEMETREXED [Concomitant]
     Active Substance: PEMETREXED
     Indication: Non-small cell lung cancer
     Route: 065
  8. VIMPAT [Concomitant]
     Active Substance: LACOSAMIDE
     Dosage: 100 MILLIGRAM, BID AFTER BREALFAST AND EVENING MEAL
  9. RINDERON [Concomitant]
     Dosage: 2 MILLIGRAM, BID AFTER BREAKFAST AND EVENING MEAL (IN PREDNISOLONE EQUIVALENT: ABOUT 40 MG/DAY)
  10. ESOMEPRAZOLE [Concomitant]
     Active Substance: ESOMEPRAZOLE
     Dosage: 20 MILLIGRAM, QD AFTER BERAKFAST
  11. DAYVIGO [Concomitant]
     Active Substance: LEMBOREXANT
     Dosage: 5 MILLIGRAM, QD BEFORE BEDTIME
  12. BETAMETHASONE [Concomitant]
     Active Substance: BETAMETHASONE
     Indication: Metastases to central nervous system
     Route: 065
  13. BETAMETHASONE [Concomitant]
     Active Substance: BETAMETHASONE
     Indication: Metastases to central nervous system

REACTIONS (9)
  - Myeloproliferative neoplasm [Unknown]
  - Acute myeloid leukaemia [Unknown]
  - Myelodysplastic syndrome [Unknown]
  - Neoplasm malignant [Unknown]
  - Nephroblastoma [Unknown]
  - Chronic myeloid leukaemia [Unknown]
  - Malaise [Recovered/Resolved]
  - Anaemia [Recovered/Resolved]
  - Blast cells present [Recovered/Resolved]

NARRATIVE: CASE EVENT DATE: 20240621
